FAERS Safety Report 18722606 (Version 3)
Quarter: 2021Q3

REPORT INFORMATION
  Report Type: Report from Study
  Country: US (occurrence: US)
  Receive Date: 20210111
  Receipt Date: 20210810
  Transmission Date: 20211014
  Serious: No
  Sender: FDA-Public Use
  Company Number: US-ACADIA PHARMACEUTICALS INC.-ACA-2020-PIM-004075

PATIENT
  Age: 77 Year
  Sex: Female

DRUGS (24)
  1. NUPLAZID [Suspect]
     Active Substance: PIMAVANSERIN TARTRATE
     Indication: PARKINSON^S DISEASE
     Dosage: 34 MILLIGRAM, QD
     Route: 048
     Dates: start: 20200708, end: 202103
  2. NUPLAZID [Suspect]
     Active Substance: PIMAVANSERIN TARTRATE
     Dosage: 34 MILLIGRAM, QD
     Route: 048
  3. OMEPRAZOLE. [Concomitant]
     Active Substance: OMEPRAZOLE
     Dosage: 20 MILLIGRAM
  4. AMLODIPINE BESILATE [Concomitant]
     Active Substance: AMLODIPINE BESYLATE
     Dosage: 100 % POWDER
  5. FLONASE ALLERGY RELIEF [Concomitant]
     Active Substance: FLUTICASONE PROPIONATE
  6. FLUTICASONE. [Concomitant]
     Active Substance: FLUTICASONE
  7. LOSARTAN AND HYDROCHLOROTHIAZIDE [Concomitant]
     Active Substance: HYDROCHLOROTHIAZIDE\LOSARTAN POTASSIUM
  8. MODERNA COVID?19 VACCINE (EUA) [Concomitant]
  9. VITAMIN D [COLECALCIFEROL] [Concomitant]
     Active Substance: CHOLECALCIFEROL
     Dosage: VITAMIN D?400 10 MCG
  10. ALENDRONATE SODIUM. [Concomitant]
     Active Substance: ALENDRONATE SODIUM
     Dosage: 10 MILLIGRAM
  11. QUETIAPINE FUMARATE. [Concomitant]
     Active Substance: QUETIAPINE FUMARATE
     Dosage: 100 MILLIGRAM
  12. CLONAZEPAM. [Concomitant]
     Active Substance: CLONAZEPAM
     Dosage: 1 MILLIGRAM
  13. ESTRADIOL. [Concomitant]
     Active Substance: ESTRADIOL
     Dosage: 0.01 % CREAM/APPL
  14. RASAGILINE MESYLATE. [Concomitant]
     Active Substance: RASAGILINE MESYLATE
     Dosage: 0.5 MG
  15. ACETIC ACID. [Concomitant]
     Active Substance: ACETIC ACID
  16. CITALOPRAM [Concomitant]
     Active Substance: CITALOPRAM HYDROBROMIDE
     Dosage: 10 MILLIGRAM
  17. PROPRANOLOL [Concomitant]
     Active Substance: PROPRANOLOL HYDROCHLORIDE
  18. DONEPEZIL HCL [Concomitant]
     Active Substance: DONEPEZIL HYDROCHLORIDE
     Dosage: 10 MILLIGRAM
  19. INBRIJA [Concomitant]
     Active Substance: LEVODOPA
     Dosage: 42 MILLIGRAM CAP W/DEV
  20. RYTARY [Concomitant]
     Active Substance: CARBIDOPA\LEVODOPA
     Dosage: 48.75?195 (UNKNOWN UNITS)
  21. RIVASTIGMINE. [Concomitant]
     Active Substance: RIVASTIGMINE
     Dosage: 1.5 MG
  22. TROSPIUM [Concomitant]
     Active Substance: TROSPIUM
  23. ALBUTEROL SULFATE HFA [Concomitant]
     Active Substance: ALBUTEROL SULFATE
  24. ACETAMINOPHEN. [Concomitant]
     Active Substance: ACETAMINOPHEN
     Dosage: 325 MILLIGRAM

REACTIONS (9)
  - Product dose omission issue [Recovered/Resolved]
  - Delusion [Unknown]
  - Malaise [Unknown]
  - Therapeutic product effect decreased [Unknown]
  - Abnormal behaviour [Unknown]
  - Adverse drug reaction [Unknown]
  - Hallucination [Not Recovered/Not Resolved]
  - Hallucination, visual [Unknown]
  - Condition aggravated [Not Recovered/Not Resolved]

NARRATIVE: CASE EVENT DATE: 202103
